FAERS Safety Report 12335939 (Version 1)
Quarter: 2016Q2

REPORT INFORMATION
  Report Type: Spontaneous
  Country: IT (occurrence: IT)
  Receive Date: 20160505
  Receipt Date: 20160505
  Transmission Date: 20160815
  Serious: Yes (Life-Threatening, Hospitalization, Other)
  Sender: FDA-Public Use
  Company Number: IT-PAR PHARMACEUTICAL COMPANIES-2016SCPR015413

PATIENT

DRUGS (1)
  1. IBUPROFEN. [Suspect]
     Active Substance: IBUPROFEN
     Indication: SPINAL PAIN
     Dosage: 600 MG, TID
     Route: 065

REACTIONS (4)
  - Large intestinal ulcer [Unknown]
  - Gastritis haemorrhagic [Unknown]
  - Pulmonary embolism [Unknown]
  - Transient ischaemic attack [Unknown]
